FAERS Safety Report 13079058 (Version 1)
Quarter: 2017Q1

REPORT INFORMATION
  Report Type: Spontaneous
  Country: US (occurrence: US)
  Receive Date: 20170102
  Receipt Date: 20170102
  Transmission Date: 20170428
  Serious: No
  Sender: FDA-Public Use
  Company Number: US-ASTRAZENECA-2016SF37950

PATIENT
  Age: 822 Month
  Sex: Female
  Weight: 63 kg

DRUGS (2)
  1. MOVANTIK [Suspect]
     Active Substance: NALOXEGOL OXALATE
     Indication: CONSTIPATION
     Dosage: SPLIT THE MOVANTIK 25 MG TABLET AND ONLY TAKE HALF A TABLET
     Route: 048
  2. MOVANTIK [Suspect]
     Active Substance: NALOXEGOL OXALATE
     Indication: CONSTIPATION
     Route: 048
     Dates: start: 201612, end: 20161227

REACTIONS (8)
  - Malaise [Unknown]
  - Drug withdrawal syndrome [Unknown]
  - Influenza like illness [Unknown]
  - Hyperhidrosis [Unknown]
  - Anxiety [Unknown]
  - Abdominal pain upper [Unknown]
  - Intentional product misuse [Unknown]
  - Chills [Unknown]

NARRATIVE: CASE EVENT DATE: 201612
